FAERS Safety Report 17801763 (Version 2)
Quarter: 2020Q3

REPORT INFORMATION
  Report Type: Spontaneous
  Country: JP (occurrence: JP)
  Receive Date: 20200519
  Receipt Date: 20200702
  Transmission Date: 20201102
  Serious: Yes (Other)
  Sender: FDA-Public Use
  Company Number: JP-AMGEN-JPNSP2020080180

PATIENT
  Age: 72 Year
  Sex: Female

DRUGS (3)
  1. FOLIC ACID. [Concomitant]
     Active Substance: FOLIC ACID
     Dosage: 1 DF, WEEKLY(WEDNESDAY)
  2. ENBREL [Suspect]
     Active Substance: ETANERCEPT
     Indication: PRODUCT USED FOR UNKNOWN INDICATION
     Dosage: WEEKLY ON FRIDAYS
     Route: 058
  3. RHEUMATREX [Suspect]
     Active Substance: METHOTREXATE SODIUM
     Indication: PRODUCT USED FOR UNKNOWN INDICATION
     Dosage: 3 DF, WEEKLY(ON MONDAYS)
     Route: 048

REACTIONS (6)
  - Injection site extravasation [Unknown]
  - Arthralgia [Unknown]
  - Internal haemorrhage [Unknown]
  - Device failure [Unknown]
  - Erythema [Unknown]
  - Injection site haemorrhage [Recovered/Resolved]
